FAERS Safety Report 12795782 (Version 2)
Quarter: 2016Q4

REPORT INFORMATION
  Report Type: Spontaneous
  Country: GB (occurrence: GB)
  Receive Date: 20160929
  Receipt Date: 20161010
  Transmission Date: 20170207
  Serious: Yes (Hospitalization, Other)
  Sender: FDA-Public Use
  Company Number: GB-PFIZER INC-2016448647

PATIENT
  Age: 19 Month
  Sex: Male
  Weight: 13.75 kg

DRUGS (11)
  1. PHENYTOIN. [Suspect]
     Active Substance: PHENYTOIN
     Indication: SEIZURE
     Dosage: 65 MG, UNK
     Route: 042
     Dates: start: 20160507, end: 20160515
  2. CHLORPHENAMINE [Concomitant]
     Active Substance: CHLORPHENIRAMINE MALEATE
  3. AMOXICILLIN. [Concomitant]
     Active Substance: AMOXICILLIN
     Dosage: UNK
     Route: 048
  4. RIFAMPICIN [Concomitant]
     Active Substance: RIFAMPIN
  5. FENTANYL. [Concomitant]
     Active Substance: FENTANYL
  6. CEFOTAXIME [Suspect]
     Active Substance: CEFOTAXIME SODIUM
     Indication: MENINGITIS STREPTOCOCCAL
     Dosage: 650 MG, UNK
     Route: 042
     Dates: start: 20160501, end: 20160515
  7. HEPARIN [Concomitant]
     Active Substance: HEPARIN SODIUM
  8. TEICOPLANIN [Concomitant]
     Active Substance: TEICOPLANIN
  9. CHLORAL HYDRATE [Concomitant]
     Active Substance: CHLORAL HYDRATE
     Dosage: UNK
  10. LEVETIRACETAM. [Concomitant]
     Active Substance: LEVETIRACETAM
  11. SODIUM FEREDETATE [Concomitant]
     Active Substance: SODIUM FEREDETATE

REACTIONS (7)
  - Eosinophilia [Unknown]
  - Pyrexia [Unknown]
  - Drug reaction with eosinophilia and systemic symptoms [Recovered/Resolved]
  - Rash maculo-papular [Recovered/Resolved]
  - Enterococcal infection [Unknown]
  - Inflammatory marker increased [Unknown]
  - Neutropenia [Recovered/Resolved]

NARRATIVE: CASE EVENT DATE: 20160514
